FAERS Safety Report 15580484 (Version 12)
Quarter: 2020Q1

REPORT INFORMATION
  Report Type: Report from Study
  Country: US (occurrence: US)
  Receive Date: 20181102
  Receipt Date: 20200205
  Transmission Date: 20200409
  Serious: Yes (Death, Hospitalization)
  Sender: FDA-Public Use
  Company Number: US-ACTELION-A-NJ2018-168718

PATIENT
  Age: 72 Year
  Sex: Female
  Weight: 68.03 kg

DRUGS (4)
  1. VELETRI [Suspect]
     Active Substance: EPOPROSTENOL
     Dosage: 27 NG/KG, PER MIN
     Route: 042
  2. VELETRI [Suspect]
     Active Substance: EPOPROSTENOL
     Indication: PULMONARY ARTERIAL HYPERTENSION
     Dosage: 30 NG/KG, PER MIN
     Route: 042
  3. VELETRI [Suspect]
     Active Substance: EPOPROSTENOL
     Dosage: 20 NG/KG, PER MIN
     Route: 042
  4. VELETRI [Suspect]
     Active Substance: EPOPROSTENOL
     Dosage: 33 NG/KG, PER MIN
     Route: 042

REACTIONS (22)
  - Erythema [Unknown]
  - Urinary tract infection [Unknown]
  - Fluid overload [Unknown]
  - Accidental overdose [Unknown]
  - Dyspnoea [Unknown]
  - Device infusion issue [Unknown]
  - Lower respiratory tract infection [Unknown]
  - Loss of consciousness [Unknown]
  - Dehydration [Unknown]
  - Syncope [Unknown]
  - Polyuria [Unknown]
  - Drug dose omission by device [Unknown]
  - Cardiac failure congestive [Unknown]
  - Weight increased [Unknown]
  - Cold sweat [Unknown]
  - Hospice care [Recovering/Resolving]
  - Skin irritation [Unknown]
  - Death [Fatal]
  - Fatigue [Unknown]
  - Nasopharyngitis [Unknown]
  - Gangrene [Unknown]
  - Fluid retention [Not Recovered/Not Resolved]

NARRATIVE: CASE EVENT DATE: 20180314
